FAERS Safety Report 25752658 (Version 1)
Quarter: 2025Q3

REPORT INFORMATION
  Report Type: Spontaneous
  Country: EU (occurrence: EU)
  Receive Date: 20250902
  Receipt Date: 20250902
  Transmission Date: 20251020
  Serious: Yes (Other)
  Sender: MYLAN
  Company Number: EU-ROCHE-10000364023

PATIENT
  Age: 68 Year
  Sex: Female

DRUGS (20)
  1. VENLAFAXINE [Suspect]
     Active Substance: VENLAFAXINE HYDROCHLORIDE
     Indication: Product used for unknown indication
     Dosage: QD (FROM 37.5 MG TO 300 MG/DAY)
     Dates: start: 202406
  2. VENLAFAXINE [Suspect]
     Active Substance: VENLAFAXINE HYDROCHLORIDE
     Dosage: QD (FROM 37.5 MG TO 300 MG/DAY)
     Route: 048
     Dates: start: 202406
  3. VENLAFAXINE [Suspect]
     Active Substance: VENLAFAXINE HYDROCHLORIDE
     Dosage: QD (FROM 37.5 MG TO 300 MG/DAY)
     Route: 048
     Dates: start: 202406
  4. VENLAFAXINE [Suspect]
     Active Substance: VENLAFAXINE HYDROCHLORIDE
     Dosage: QD (FROM 37.5 MG TO 300 MG/DAY)
     Dates: start: 202406
  5. BROMAZEPAM [Suspect]
     Active Substance: BROMAZEPAM
     Indication: Product used for unknown indication
     Dosage: QD (DOSE:UP TO 12 MG/DAY)
     Dates: start: 202406
  6. BROMAZEPAM [Suspect]
     Active Substance: BROMAZEPAM
     Dosage: QD (DOSE:UP TO 12 MG/DAY)
     Route: 048
     Dates: start: 202406
  7. BROMAZEPAM [Suspect]
     Active Substance: BROMAZEPAM
     Dosage: QD (DOSE:UP TO 12 MG/DAY)
     Route: 048
     Dates: start: 202406
  8. BROMAZEPAM [Suspect]
     Active Substance: BROMAZEPAM
     Dosage: QD (DOSE:UP TO 12 MG/DAY)
     Dates: start: 202406
  9. QUETIAPINE [Suspect]
     Active Substance: QUETIAPINE
     Indication: Product used for unknown indication
     Dosage: QD (FROM 50 MG TO 300 MG/DAY)
     Dates: start: 202406
  10. QUETIAPINE [Suspect]
     Active Substance: QUETIAPINE
     Dosage: QD (FROM 50 MG TO 300 MG/DAY)
     Route: 048
     Dates: start: 202406
  11. QUETIAPINE [Suspect]
     Active Substance: QUETIAPINE
     Dosage: QD (FROM 50 MG TO 300 MG/DAY)
     Route: 048
     Dates: start: 202406
  12. QUETIAPINE [Suspect]
     Active Substance: QUETIAPINE
     Dosage: QD (FROM 50 MG TO 300 MG/DAY)
     Dates: start: 202406
  13. DIAZEPAM [Suspect]
     Active Substance: DIAZEPAM
     Indication: Product used for unknown indication
     Dosage: QD (DOSE: UP TO 30 MG/DAY)
     Dates: start: 202406
  14. DIAZEPAM [Suspect]
     Active Substance: DIAZEPAM
     Dosage: QD (DOSE: UP TO 30 MG/DAY)
     Route: 048
     Dates: start: 202406
  15. DIAZEPAM [Suspect]
     Active Substance: DIAZEPAM
     Dosage: QD (DOSE: UP TO 30 MG/DAY)
     Route: 048
     Dates: start: 202406
  16. DIAZEPAM [Suspect]
     Active Substance: DIAZEPAM
     Dosage: QD (DOSE: UP TO 30 MG/DAY)
     Dates: start: 202406
  17. TERALITHE [Suspect]
     Active Substance: LITHIUM CARBONATE
     Indication: Product used for unknown indication
     Dosage: QD (FROM 400 MG LP TO 1000 MG LI/DAY)
     Dates: start: 202406
  18. TERALITHE [Suspect]
     Active Substance: LITHIUM CARBONATE
     Dosage: QD (FROM 400 MG LP TO 1000 MG LI/DAY)
     Route: 065
     Dates: start: 202406
  19. TERALITHE [Suspect]
     Active Substance: LITHIUM CARBONATE
     Dosage: QD (FROM 400 MG LP TO 1000 MG LI/DAY)
     Route: 065
     Dates: start: 202406
  20. TERALITHE [Suspect]
     Active Substance: LITHIUM CARBONATE
     Dosage: QD (FROM 400 MG LP TO 1000 MG LI/DAY)
     Dates: start: 202406

REACTIONS (2)
  - Drug abuse [Unknown]
  - Pharmaceutical nomadism [Not Recovered/Not Resolved]

NARRATIVE: CASE EVENT DATE: 20240601
